FAERS Safety Report 8555467-4 (Version None)
Quarter: 2012Q3

REPORT INFORMATION
  Report Type: 
  Country: None (occurrence: None)
  Receive Date: 20120731
  Receipt Date: 20120406
  Transmission Date: 20120928
  Serious: Yes (Other)
  Sender: FDA-Public Use
  Company Number: US-ASTRAZENECA-2011SE04543

PATIENT
  Age: 46 Year
  Sex: Male

DRUGS (16)
  1. SEROQUEL XR [Suspect]
     Indication: TACHYPHRENIA
     Route: 048
     Dates: start: 20100101, end: 20110101
  2. SEROQUEL XR [Suspect]
     Indication: ANXIETY
     Route: 048
     Dates: start: 20100101, end: 20110101
  3. SEROQUEL XR [Suspect]
     Route: 048
  4. LEXAPRO [Concomitant]
  5. SEROQUEL XR [Suspect]
     Route: 048
  6. LYRICA [Concomitant]
     Indication: BURNING FEET SYNDROME
  7. AMBIEN [Concomitant]
  8. SEROQUEL XR [Suspect]
     Route: 048
  9. SEROQUEL XR [Suspect]
     Indication: DEPRESSION
     Route: 048
     Dates: start: 20100101, end: 20110101
  10. SEROQUEL XR [Suspect]
     Indication: BIPOLAR DISORDER
     Route: 048
     Dates: start: 20100101, end: 20110101
  11. SEROQUEL XR [Suspect]
     Route: 048
  12. SEROQUEL XR [Suspect]
     Route: 048
  13. LYRICA [Concomitant]
     Indication: PAIN
  14. SEROQUEL XR [Suspect]
     Route: 048
  15. SEROQUEL XR [Suspect]
     Route: 048
  16. SEROQUEL XR [Suspect]
     Route: 048

REACTIONS (16)
  - NIGHT SWEATS [None]
  - IRRITABILITY [None]
  - HALLUCINATION [None]
  - SUICIDAL IDEATION [None]
  - BURNING FEET SYNDROME [None]
  - VISION BLURRED [None]
  - INSOMNIA [None]
  - ACTIVITIES OF DAILY LIVING IMPAIRED [None]
  - HEADACHE [None]
  - BLOOD CHOLESTEROL INCREASED [None]
  - INTENTIONAL DRUG MISUSE [None]
  - VISUAL ACUITY REDUCED [None]
  - OFF LABEL USE [None]
  - PAIN IN EXTREMITY [None]
  - MALAISE [None]
  - MEMORY IMPAIRMENT [None]
